FAERS Safety Report 24906272 (Version 1)
Quarter: 2025Q1

REPORT INFORMATION
  Report Type: Spontaneous
  Country: PR (occurrence: PR)
  Receive Date: 20250130
  Receipt Date: 20250130
  Transmission Date: 20250408
  Serious: No
  Sender: BRISTOL-MYERS SQUIBB COMPANY
  Company Number: PR-BRISTOL-MYERS SQUIBB COMPANY-2025-010637

PATIENT
  Age: 74 Year
  Sex: Female
  Weight: 39.01 kg

DRUGS (3)
  1. LENALIDOMIDE [Suspect]
     Active Substance: LENALIDOMIDE
     Indication: Plasma cell myeloma
     Route: 048
     Dates: start: 20250119
  2. DARZALEX [Concomitant]
     Active Substance: DARATUMUMAB
     Indication: Product used for unknown indication
     Route: 042
  3. DEXAMETHASONE [Concomitant]
     Active Substance: DEXAMETHASONE
     Indication: Product used for unknown indication

REACTIONS (6)
  - Urticaria [Recovering/Resolving]
  - Taste disorder [Recovering/Resolving]
  - Breath odour [Recovering/Resolving]
  - Tongue disorder [Recovering/Resolving]
  - Breast swelling [Recovering/Resolving]
  - Hypersensitivity [Recovering/Resolving]
